FAERS Safety Report 10553666 (Version 2)
Quarter: 2015Q1

REPORT INFORMATION
  Report Type: Spontaneous
  Country: FR (occurrence: None)
  Receive Date: 20141028
  Receipt Date: 20150121
  Transmission Date: 20150720
  Serious: Yes (Life-Threatening, Hospitalization)
  Sender: FDA-Public Use
  Company Number: FR2014GSK005131

PATIENT
  Age: 43 Year
  Sex: Female

DRUGS (4)
  1. PARACETAMOL (PARACETAMOL) UNKNOWN, UNKNOWN [Suspect]
     Active Substance: ACETAMINOPHEN
     Indication: SUICIDE ATTEMPT
     Dosage: 32 G, SINGLE, ORAL
     Route: 048
     Dates: start: 20140820, end: 20140820
  2. PAROXETINE [Suspect]
     Active Substance: PAROXETINE\PAROXETINE HYDROCHLORIDE
     Indication: MAJOR DEPRESSION
     Route: 048
     Dates: end: 20140820
  3. STABLON [Suspect]
     Active Substance: TIANEPTINE
     Indication: SUICIDE ATTEMPT
     Dosage: 375 MG, SINGLE; ORAL?
     Route: 048
     Dates: start: 20140820, end: 20140820
  4. LEXOMIL [Suspect]
     Active Substance: BROMAZEPAM
     Indication: MAJOR DEPRESSION
     Route: 048

REACTIONS (5)
  - Suicide attempt [None]
  - Intentional product misuse [None]
  - Hepatitis acute [None]
  - Toxicity to various agents [None]
  - Intentional overdose [None]

NARRATIVE: CASE EVENT DATE: 20140820
